FAERS Safety Report 14071134 (Version 3)
Quarter: 2017Q4

REPORT INFORMATION
  Report Type: Spontaneous
  Country: JP (occurrence: JP)
  Receive Date: 20171011
  Receipt Date: 20171226
  Transmission Date: 20180321
  Serious: Yes (Other)
  Sender: FDA-Public Use
  Company Number: JP-TAKEDA-2017MPI008835

PATIENT

DRUGS (3)
  1. VELCADE [Suspect]
     Active Substance: BORTEZOMIB
     Indication: PLASMA CELL MYELOMA
     Dosage: UNK
     Route: 058
  2. FARYDAK [Concomitant]
     Active Substance: PANOBINOSTAT
     Dosage: UNK
     Route: 048
  3. LENADEX [Concomitant]
     Active Substance: DEXAMETHASONE ACETATE
     Dosage: UNK
     Route: 048

REACTIONS (1)
  - Bradycardia [Recovering/Resolving]
